FAERS Safety Report 14556553 (Version 1)
Quarter: 2018Q1

REPORT INFORMATION
  Report Type: Report from Study
  Country: ES (occurrence: ES)
  Receive Date: 20180221
  Receipt Date: 20180221
  Transmission Date: 20180509
  Serious: Yes (Hospitalization)
  Sender: FDA-Public Use
  Company Number: ES-BAUSCH-BL-2018-004439

PATIENT
  Age: 87 Year
  Sex: Female

DRUGS (2)
  1. ENALAPRIL 20 MG [Suspect]
     Active Substance: ENALAPRIL
     Indication: HYPERTENSION
     Dosage: 28 TABLETS
     Route: 048
     Dates: start: 20130514, end: 20170804
  2. HEIPRAM 10 MG [Suspect]
     Active Substance: ESCITALOPRAM OXALATE
     Indication: DEPRESSION
     Dosage: COMPRESSED FILMS WITH FILM EFG , 56 TABLETS
     Route: 048
     Dates: start: 20170505, end: 20170804

REACTIONS (2)
  - Delirium [Recovering/Resolving]
  - Hyponatraemia [Recovering/Resolving]

NARRATIVE: CASE EVENT DATE: 20170804
